FAERS Safety Report 21056008 (Version 2)
Quarter: 2022Q3

REPORT INFORMATION
  Report Type: Spontaneous
  Country: US (occurrence: US)
  Receive Date: 20220708
  Receipt Date: 20220720
  Transmission Date: 20221027
  Serious: Yes (Hospitalization, Other)
  Sender: FDA-Public Use
  Company Number: US-NOVOPROD-933624

PATIENT
  Age: 68 Year
  Sex: Female

DRUGS (2)
  1. RYBELSUS [Suspect]
     Active Substance: SEMAGLUTIDE
     Indication: Product used for unknown indication
     Dosage: 3 MG, QD
     Route: 048
     Dates: start: 20220428
  2. RYBELSUS [Suspect]
     Active Substance: SEMAGLUTIDE
     Dosage: 7 MG, QD
     Route: 048

REACTIONS (3)
  - Pain [Unknown]
  - Sciatica [Unknown]
  - Pancreatitis [Unknown]

NARRATIVE: CASE EVENT DATE: 20220101
